FAERS Safety Report 5915520-8 (Version None)
Quarter: 2008Q4

REPORT INFORMATION
  Report Type: 
  Country: None (occurrence: None)
  Receive Date: 20081010
  Receipt Date: 20081003
  Transmission Date: 20090506
  Serious: Yes (Other)
  Sender: FDA-Public Use
  Company Number: FR-ASTRAZENECA-2008CG01442

PATIENT
  Age: 6 Month
  Sex: Male

DRUGS (3)
  1. PULMICORT-100 [Suspect]
     Indication: BRONCHITIS
     Route: 055
     Dates: start: 20081002, end: 20081003
  2. ATROVENT [Suspect]
     Indication: BRONCHITIS
     Route: 055
     Dates: start: 20081002, end: 20081003
  3. VENTOLIN [Suspect]
     Indication: BRONCHITIS
     Route: 055
     Dates: start: 20081002, end: 20081003

REACTIONS (1)
  - MALAISE [None]
